FAERS Safety Report 24419362 (Version 2)
Quarter: 2024Q4

REPORT INFORMATION
  Report Type: Spontaneous
  Country: TR (occurrence: TR)
  Receive Date: 20241009
  Receipt Date: 20241018
  Transmission Date: 20250115
  Serious: No
  Sender: ROCHE
  Company Number: TR-BoehringerIngelheim-2023-BI-273681

PATIENT
  Age: 31 Year
  Sex: Female

DRUGS (2)
  1. ALTEPLASE [Suspect]
     Active Substance: ALTEPLASE
     Indication: Pulmonary artery thrombosis
     Route: 065
  2. HEPARIN [Concomitant]
     Active Substance: HEPARIN SODIUM
     Indication: Thrombosis prophylaxis

REACTIONS (2)
  - Abdominal wall haematoma [Recovered/Resolved]
  - Haemoglobin decreased [Unknown]
